FAERS Safety Report 4280160-6 (Version None)
Quarter: 2004Q1

REPORT INFORMATION
  Report Type: 
  Country: None (occurrence: None)
  Receive Date: 20040126
  Receipt Date: 20040114
  Transmission Date: 20041129
  Serious: Yes (Hospitalization)
  Sender: FDA-Public Use
  Company Number: 2004AP00246

PATIENT
  Age: 77 Year
  Sex: Female
  Weight: 52 kg

DRUGS (18)
  1. DIPRIVAN [Suspect]
     Indication: SEDATIVE THERAPY
     Dosage: 1% DAILY
     Dates: start: 20040101, end: 20040107
  2. SIGMART [Concomitant]
  3. MANNITOL SOLUTION [Concomitant]
  4. LASIX [Concomitant]
  5. GASTER [Concomitant]
  6. INOVAN [Concomitant]
  7. MILLISROL [Concomitant]
  8. HEPARIN [Concomitant]
  9. CEFAZOLIN [Concomitant]
  10. RED BLOOD CELLS [Concomitant]
  11. DOBUTREX [Concomitant]
  12. MUSCULAX [Concomitant]
  13. MIDAZOLAM HCL [Concomitant]
  14. ATROPINE SULFATE [Concomitant]
  15. EPHEDRINE ^BIOTIKA^ [Concomitant]
  16. BOSMIN [Concomitant]
  17. FENTANEST [Concomitant]
  18. XYLOCAINE [Concomitant]

REACTIONS (3)
  - APNOEA [None]
  - DELAYED RECOVERY FROM ANAESTHESIA [None]
  - DEPRESSED LEVEL OF CONSCIOUSNESS [None]
